FAERS Safety Report 12204521 (Version 1)
Quarter: 2016Q1

REPORT INFORMATION
  Report Type: Spontaneous
  Country: US (occurrence: None)
  Receive Date: 20160322
  Receipt Date: 20160322
  Transmission Date: 20160526
  Serious: No
  Sender: FDA-Public Use
  Company Number: None

PATIENT
  Age: 18 Month
  Sex: Male
  Weight: 12.7 kg

DRUGS (1)
  1. SINGULAIR [Suspect]
     Active Substance: MONTELUKAST SODIUM
     Indication: MULTIPLE ALLERGIES
     Dosage: 1 PACKET  ONCE DAILY  TAKEN BY MOUTH
     Route: 048
     Dates: start: 20160314, end: 20160321

REACTIONS (4)
  - Psychomotor hyperactivity [None]
  - Sleep terror [None]
  - Aggression [None]
  - Diarrhoea [None]

NARRATIVE: CASE EVENT DATE: 20160314
